FAERS Safety Report 17216078 (Version 3)
Quarter: 2020Q1

REPORT INFORMATION
  Report Type: Spontaneous
  Country: US (occurrence: US)
  Receive Date: 20191230
  Receipt Date: 20200319
  Transmission Date: 20200409
  Serious: No
  Sender: FDA-Public Use
  Company Number: NVSC2019US081853

PATIENT
  Sex: Male

DRUGS (1)
  1. COSENTYX [Suspect]
     Active Substance: SECUKINUMAB
     Indication: PRODUCT USED FOR UNKNOWN INDICATION
     Dosage: 300 MG, QMO (FOR 3 TO 4 MONTHS)
     Route: 065

REACTIONS (4)
  - Cough [Unknown]
  - Disease recurrence [Unknown]
  - Drug ineffective [Unknown]
  - Psoriasis [Unknown]
